FAERS Safety Report 5407721-2 (Version None)
Quarter: 2007Q3

REPORT INFORMATION
  Report Type: 
  Country: None (occurrence: None)
  Receive Date: 20070803
  Receipt Date: 20070712
  Transmission Date: 20080115
  Serious: Yes (Other)
  Sender: FDA-Public Use
  Company Number: E2B_00010861

PATIENT
  Age: 42 Year
  Sex: Male

DRUGS (2)
  1. METFORMIN HCL [Suspect]
     Indication: TYPE 2 DIABETES MELLITUS
     Dosage: 2000 MG (1000 MG, 2 IN 1 D)
     Dates: start: 20070410
  2. EXENATIDE (EXENATIDE) [Suspect]
     Indication: TYPE 2 DIABETES MELLITUS
     Dates: start: 20070410

REACTIONS (2)
  - CARDIOVASCULAR INSUFFICIENCY [None]
  - GASTROENTERITIS NORWALK VIRUS [None]
